FAERS Safety Report 4982670-2 (Version None)
Quarter: 2006Q2

REPORT INFORMATION
  Report Type: 
  Country: None (occurrence: None)
  Receive Date: 20060425
  Receipt Date: 20050408
  Transmission Date: 20061013
  Serious: Yes (Other)
  Sender: FDA-Public Use
  Company Number: US-MERCK-0504USA01585

PATIENT
  Age: 69 Year
  Sex: Male

DRUGS (9)
  1. VIOXX [Suspect]
     Route: 048
     Dates: end: 20000601
  2. COVERA-HS [Concomitant]
     Route: 048
  3. ZOCOR [Concomitant]
     Route: 048
  4. PAXIL [Concomitant]
     Route: 048
  5. PAXIL [Concomitant]
     Route: 048
  6. INDAPAMIDE [Concomitant]
     Route: 048
  7. PLAVIX [Concomitant]
     Route: 048
  8. NEURONTIN [Concomitant]
     Route: 048
     Dates: end: 20000601
  9. AGYRAX (MECLIZINE HYDROCHLORIDE) [Concomitant]
     Indication: VERTIGO
     Route: 065

REACTIONS (5)
  - CORONARY ARTERY DISEASE [None]
  - DYSPNOEA [None]
  - GYNAECOMASTIA [None]
  - MYOCARDIAL INFARCTION [None]
  - NEUROPATHY [None]
